FAERS Safety Report 20169863 (Version 1)
Quarter: 2021Q4

REPORT INFORMATION
  Report Type: Other
  Country: US (occurrence: None)
  Receive Date: 20211210
  Receipt Date: 20211210
  Transmission Date: 20220303
  Serious: Yes (Disabling)
  Sender: FDA-Public Use
  Company Number: US-ROCHE-2970884

PATIENT
  Sex: Male

DRUGS (23)
  1. XELODA [Suspect]
     Active Substance: CAPECITABINE
     Indication: Colorectal cancer metastatic
     Dosage: TAKE 3 TABLET(S) BY MOUTH TWICE A DAY ON DAYS 1-14 OF EACH 21 DAY CYCLE
     Route: 048
  2. XELODA [Suspect]
     Active Substance: CAPECITABINE
     Indication: Rectal cancer
  3. LIDOCAINE AND PRILOCAINE [Concomitant]
     Active Substance: LIDOCAINE\PRILOCAINE
     Route: 061
  4. PROCHLORPERAZINE [Concomitant]
     Active Substance: PROCHLORPERAZINE
     Route: 048
  5. RIVAROXABAN [Concomitant]
     Active Substance: RIVAROXABAN
     Route: 048
  6. XARELTO [Concomitant]
     Active Substance: RIVAROXABAN
     Route: 048
  7. SUDAFED [Concomitant]
     Active Substance: PSEUDOEPHEDRINE HYDROCHLORIDE
     Route: 048
  8. VITAMIN D3 [Concomitant]
     Active Substance: CHOLECALCIFEROL
     Route: 048
  9. ZINC [Concomitant]
     Active Substance: ZINC
     Route: 048
  10. OXALIPLATIN [Concomitant]
     Active Substance: OXALIPLATIN
     Route: 042
  11. LEUCOVORIN [Concomitant]
     Active Substance: LEUCOVORIN
     Route: 042
  12. FLUOROURACIL [Concomitant]
     Active Substance: FLUOROURACIL
     Route: 042
  13. FLUOROURACIL [Concomitant]
     Active Substance: FLUOROURACIL
     Route: 042
  14. MVASI [Concomitant]
     Active Substance: BEVACIZUMAB-AWWB
  15. PALONOSETRON [Concomitant]
     Active Substance: PALONOSETRON
     Route: 042
  16. DEXAMETHASONE [Concomitant]
     Active Substance: DEXAMETHASONE
     Route: 042
  17. FOSAPREPITANT [Concomitant]
     Active Substance: FOSAPREPITANT
     Route: 042
  18. EPINEPHRINE [Concomitant]
     Active Substance: EPINEPHRINE
     Route: 030
  19. DIPHENHYDRAMINE [Concomitant]
     Active Substance: DIPHENHYDRAMINE
     Route: 042
  20. FAMOTIDINE [Concomitant]
     Active Substance: FAMOTIDINE
     Route: 042
  21. HYDROCORTISONE [Concomitant]
     Active Substance: HYDROCORTISONE
     Route: 042
  22. METHYLPREDNISOLONE [Concomitant]
     Active Substance: METHYLPREDNISOLONE
     Route: 042
  23. VITAMIN B COMPLEX [Concomitant]
     Active Substance: CYANOCOBALAMIN\DEXPANTHENOL\NIACINAMIDE\PYRIDOXINE HYDROCHLORIDE\RIBOFLAVIN 5^-PHOSPHATE SODIUM\THIA

REACTIONS (1)
  - Deafness [Unknown]
